FAERS Safety Report 16795491 (Version 1)
Quarter: 2019Q4

REPORT INFORMATION
  Report Type: Spontaneous
  Country: US (occurrence: US)
  Receive Date: 20190910
  Receipt Date: 20190910
  Transmission Date: 20200122
  Serious: Yes (Life-Threatening, Hospitalization)
  Sender: FDA-Public Use
  Company Number: None

PATIENT
  Age: 52 Year
  Sex: Male
  Weight: 89.1 kg

DRUGS (4)
  1. TESTOSTERONE CYPIONATE. [Concomitant]
     Active Substance: TESTOSTERONE CYPIONATE
     Dates: start: 20170504
  2. BUPRENORPHINE-NALOXONE GENERIC TABLETS [Concomitant]
     Active Substance: BUPRENORPHINE\NALOXONE
     Dates: start: 20170313, end: 20190729
  3. SUBLOCADE [Suspect]
     Active Substance: BUPRENORPHINE
     Indication: DRUG USE DISORDER
     Dosage: 300 MG SUBCUTANEOUS Q28 DAYS?
     Route: 058
     Dates: start: 20190729
  4. RISPERIDONE. [Concomitant]
     Active Substance: RISPERIDONE
     Dates: start: 20190718

REACTIONS (4)
  - Pulmonary embolism [None]
  - Reaction to excipient [None]
  - Mobility decreased [None]
  - Injection site haematoma [None]

NARRATIVE: CASE EVENT DATE: 20190829
